FAERS Safety Report 23201142 (Version 2)
Quarter: 2023Q4

REPORT INFORMATION
  Report Type: Other
  Country: US (occurrence: US)
  Receive Date: 20231118
  Receipt Date: 20231118
  Transmission Date: 20240110
  Serious: No
  Sender: FDA-Public Use
  Company Number: US-TRAVERE-2023TVT00521

PATIENT
  Age: 30 Year
  Sex: Male

DRUGS (3)
  1. FILSPARI [Suspect]
     Active Substance: SPARSENTAN
     Indication: IgA nephropathy
     Route: 048
     Dates: start: 20230915
  2. FILSPARI [Suspect]
     Active Substance: SPARSENTAN
     Indication: Haematuria
  3. ENALAPRIL [Suspect]
     Active Substance: ENALAPRIL

REACTIONS (4)
  - Muscle fatigue [Unknown]
  - Dizziness [Unknown]
  - Vision blurred [Unknown]
  - Fatigue [Unknown]
